FAERS Safety Report 6352489-9 (Version None)
Quarter: 2009Q3

REPORT INFORMATION
  Report Type: 
  Country: None (occurrence: None)
  Receive Date: 20090912
  Receipt Date: 20090622
  Transmission Date: 20100115
  Serious: No
  Sender: FDA-Public Use
  Company Number: US-ABBOTT-08P-163-0437203-00

PATIENT
  Sex: Female
  Weight: 113.5 kg

DRUGS (8)
  1. HUMIRA [Suspect]
     Indication: RHEUMATOID ARTHRITIS
     Route: 058
     Dates: start: 20060801
  2. LYCIRA [Concomitant]
     Indication: ARTHRALGIA
     Route: 048
  3. HYDROXYCHLOROQUINE SULFATE [Concomitant]
     Indication: ARTHRALGIA
     Route: 048
  4. BUPROPION HCL [Concomitant]
     Indication: DEPRESSION
     Route: 048
  5. LOTENSE [Concomitant]
     Indication: HYPERTENSION
     Route: 048
  6. LEVOTHYROXINE SODIUM [Concomitant]
     Indication: HYPOTHYROIDISM
     Route: 048
  7. MONTELUKAST [Concomitant]
     Indication: CHRONIC OBSTRUCTIVE PULMONARY DISEASE
     Route: 048
  8. CIRRUS [Concomitant]
     Indication: SEASONAL ALLERGY
     Route: 048

REACTIONS (1)
  - INCORRECT DOSE ADMINISTERED [None]
